FAERS Safety Report 5010217-3 (Version None)
Quarter: 2006Q2

REPORT INFORMATION
  Report Type: 
  Country: None (occurrence: None)
  Receive Date: 20060404
  Receipt Date: 20051216
  Transmission Date: 20061013
  Serious: No
  Sender: FDA-Public Use
  Company Number: US200512002980

PATIENT
  Age: 51 Year
  Sex: Female

DRUGS (3)
  1. CYMBALTA [Suspect]
     Indication: DEPRESSION
     Dosage: 60 MG
     Dates: start: 20041101, end: 20051201
  2. WELLBUTRIN [Concomitant]
  3. CLONAZEPAM [Concomitant]

REACTIONS (9)
  - CRYING [None]
  - DEPRESSION [None]
  - DIZZINESS [None]
  - FATIGUE [None]
  - HERPES ZOSTER [None]
  - MALAISE [None]
  - PRODUCTIVE COUGH [None]
  - RASH [None]
  - TINNITUS [None]
